FAERS Safety Report 12470817 (Version 2)
Quarter: 2017Q1

REPORT INFORMATION
  Report Type: Report from Study
  Country: US (occurrence: US)
  Receive Date: 20160616
  Receipt Date: 20170217
  Transmission Date: 20170428
  Serious: No
  Sender: FDA-Public Use
  Company Number: PHEH2016US014959

PATIENT
  Sex: Female

DRUGS (1)
  1. GILENYA [Suspect]
     Active Substance: FINGOLIMOD HYDROCHLORIDE
     Indication: MULTIPLE SCLEROSIS
     Dosage: 0.5 MG, QD
     Route: 048
     Dates: start: 20120223

REACTIONS (4)
  - Grip strength decreased [Unknown]
  - Spinal column injury [Unknown]
  - Dysgraphia [Unknown]
  - Coccydynia [Unknown]
